FAERS Safety Report 22635381 (Version 1)
Quarter: 2023Q2

REPORT INFORMATION
  Report Type: Spontaneous
  Country: US (occurrence: None)
  Receive Date: 20230622
  Receipt Date: 20230622
  Transmission Date: 20230722
  Serious: Yes (Other)
  Sender: FDA-Public Use
  Company Number: None

PATIENT
  Age: 56 Year
  Sex: Female
  Weight: 74.25 kg

DRUGS (14)
  1. BOTOX [Suspect]
     Active Substance: ONABOTULINUMTOXINA
     Indication: Dystonia
     Dosage: OTHER FREQUENCY : EVERY 3 MONTHS;?
     Dates: start: 20230608, end: 20230608
  2. DULOXETINE [Concomitant]
     Active Substance: DULOXETINE
  3. VERAPAMIL [Concomitant]
     Active Substance: VERAPAMIL HYDROCHLORIDE
  4. benezapril [Concomitant]
  5. HYDROCODONE [Concomitant]
     Active Substance: HYDROCODONE
  6. ASPIRIN [Concomitant]
     Active Substance: ASPIRIN
  7. alluporinL [Concomitant]
  8. POTASSIUM CITRATE [Concomitant]
     Active Substance: POTASSIUM CITRATE
  9. VITAMIN D [Concomitant]
     Active Substance: VITAMIN D NOS
  10. Cranberry Tablets [Concomitant]
  11. PROBIOTICS NOS [Concomitant]
     Active Substance: PROBIOTICS NOS
  12. VITAMINS [Concomitant]
     Active Substance: VITAMINS
  13. CALCIUM [Concomitant]
     Active Substance: CALCIUM
  14. MAGNESIUM [Concomitant]
     Active Substance: MAGNESIUM

REACTIONS (17)
  - Pain [None]
  - Musculoskeletal stiffness [None]
  - Musculoskeletal stiffness [None]
  - Cervicogenic headache [None]
  - Muscular weakness [None]
  - Headache [None]
  - Dizziness [None]
  - Hypertension [None]
  - Fatigue [None]
  - Insomnia [None]
  - Tremor [None]
  - Antinuclear antibody positive [None]
  - Condition aggravated [None]
  - Disturbance in attention [None]
  - Memory impairment [None]
  - Fatigue [None]
  - Loss of personal independence in daily activities [None]

NARRATIVE: CASE EVENT DATE: 20230608
